FAERS Safety Report 8434822-7 (Version None)
Quarter: 2012Q2

REPORT INFORMATION
  Report Type: 
  Country: None (occurrence: None)
  Receive Date: 20120614
  Receipt Date: 20120601
  Transmission Date: 20120825
  Serious: Yes (Other)
  Sender: FDA-Public Use
  Company Number: PL-ACCORD-013511

PATIENT
  Age: 59 Year
  Sex: Female

DRUGS (2)
  1. GEMCITABINE [Suspect]
     Indication: NEURILEMMOMA MALIGNANT
     Dosage: ON 1 AND 8TH DAY OF CYCLE.
     Dates: start: 20100501
  2. DOCETAXEL [Suspect]
     Indication: NEURILEMMOMA MALIGNANT
     Dosage: ON DAY 8TH OF CYCLE.
     Dates: start: 20100501, end: 20101001

REACTIONS (7)
  - RENAL FAILURE CHRONIC [None]
  - PURPURA [None]
  - ANAEMIA [None]
  - OFF LABEL USE [None]
  - RESPIRATORY FAILURE [None]
  - LEUKOPENIA [None]
  - LIVER INJURY [None]
